FAERS Safety Report 9187963 (Version 1)
Quarter: 2013Q1

REPORT INFORMATION
  Report Type: Spontaneous
  Country: US (occurrence: US)
  Receive Date: 20130325
  Receipt Date: 20130325
  Transmission Date: 20140127
  Serious: No
  Sender: FDA-Public Use
  Company Number: US-MYLANLABS-2012S1021027

PATIENT
  Age: 24 Year
  Sex: Female

DRUGS (3)
  1. FENTANYL TRANSDERMAL SYSTEM [Suspect]
     Indication: HEADACHE
     Dosage: Q3D
     Route: 062
     Dates: start: 201209
  2. DIAMOX [Concomitant]
     Indication: INTRACRANIAL PRESSURE INCREASED
     Dates: start: 201111
  3. XANAX [Concomitant]
     Indication: ANXIETY

REACTIONS (6)
  - Drug ineffective [Recovered/Resolved]
  - Headache [Recovered/Resolved]
  - Swelling face [Recovered/Resolved]
  - Myalgia [Recovered/Resolved]
  - Application site rash [Recovered/Resolved]
  - Application site pruritus [Recovered/Resolved]
